FAERS Safety Report 11547317 (Version 2)
Quarter: 2015Q4

REPORT INFORMATION
  Report Type: Spontaneous
  Country: US (occurrence: None)
  Receive Date: 20150924
  Receipt Date: 20151016
  Transmission Date: 20160304
  Serious: Yes (Other)
  Sender: FDA-Public Use
  Company Number: US-MDT-ADR-2015-01840

PATIENT
  Age: 24 Year
  Sex: Female

DRUGS (2)
  1. LIORESAL [Suspect]
     Active Substance: BACLOFEN
     Indication: MUSCLE SPASTICITY
     Dosage: 964.9 MCG/DAY
  2. FENTANYL INTRATHECAL 609 MCG/ML [Suspect]
     Active Substance: FENTANYL
     Indication: MUSCLE SPASTICITY
     Dosage: 293.82 MCG/DAY

REACTIONS (4)
  - Device issue [None]
  - Flushing [None]
  - Device malfunction [None]
  - Malaise [None]
